FAERS Safety Report 16626018 (Version 2)
Quarter: 2019Q3

REPORT INFORMATION
  Report Type: Report from Study
  Country: None (occurrence: GB)
  Receive Date: 20190724
  Receipt Date: 20190801
  Transmission Date: 20191004
  Serious: Yes (Other)
  Sender: FDA-Public Use
  Company Number: GB-BAUSCH-BL-2019-021029

PATIENT
  Sex: Female

DRUGS (8)
  1. AZATHIOPRINE. [Concomitant]
     Active Substance: AZATHIOPRINE
     Indication: POLYMYOSITIS
  2. IMIQUIMOD. [Suspect]
     Active Substance: IMIQUIMOD
     Indication: OFF LABEL USE
  3. PREDNISOLONE. [Concomitant]
     Active Substance: PREDNISOLONE
     Indication: BRONCHIECTASIS
     Dosage: REPEATED PROLONGED COURSES
     Route: 048
  4. FLAMAZINE [Concomitant]
     Active Substance: SILVER SULFADIAZINE
     Indication: VULVAR DYSPLASIA
     Route: 061
  5. LIGNOCAINE [Concomitant]
     Active Substance: LIDOCAINE HYDROCHLORIDE
     Indication: VULVAR DYSPLASIA
     Route: 061
  6. IMIQUIMOD. [Suspect]
     Active Substance: IMIQUIMOD
     Indication: VULVAR DYSPLASIA
     Dosage: THREE TO FIVE TIMES WEEKLY FOR A TOTAL OF 16 WEEKS
     Route: 061
  7. IMIQUIMOD. [Suspect]
     Active Substance: IMIQUIMOD
     Indication: VULVAR DYSPLASIA
     Route: 061
  8. IMIQUIMOD. [Suspect]
     Active Substance: IMIQUIMOD
     Indication: OFF LABEL USE

REACTIONS (5)
  - Off label use [Unknown]
  - Influenza like illness [Unknown]
  - Vulvitis [Unknown]
  - Therapy non-responder [Unknown]
  - Therapy partial responder [Unknown]
